FAERS Safety Report 9655621 (Version 3)
Quarter: 2013Q4

REPORT INFORMATION
  Report Type: Report from Study
  Country: TH (occurrence: TH)
  Receive Date: 20131030
  Receipt Date: 20131120
  Transmission Date: 20140711
  Serious: Yes (Death)
  Sender: FDA-Public Use
  Company Number: TH-ROCHE-1296351

PATIENT
  Age: 63 Year
  Sex: Male

DRUGS (3)
  1. ALTEPLASE [Suspect]
     Indication: ARTERIAL OCCLUSIVE DISEASE
     Route: 042
  2. ALTEPLASE [Suspect]
     Indication: PERIPHERAL ISCHAEMIA
  3. HEPARIN [Suspect]
     Indication: THROMBOSIS
     Dosage: 500 UNITS/HR
     Route: 065

REACTIONS (4)
  - Sepsis [Fatal]
  - Peripheral embolism [Fatal]
  - Peripheral ischaemia [Fatal]
  - Pain [Fatal]
